FAERS Safety Report 5310636-1 (Version None)
Quarter: 2007Q1

REPORT INFORMATION
  Report Type: 
  Country: None (occurrence: None)
  Receive Date: 20070201
  Receipt Date: 20061016
  Transmission Date: 20070707
  Serious: No
  Sender: FDA-Public Use
  Company Number: 258278

PATIENT
  Age: 52 Year
  Sex: Female
  Weight: 62.1 kg

DRUGS (3)
  1. LEVEMIR [Suspect]
     Indication: INSULIN-REQUIRING TYPE II DIABETES MELLITUS
     Dosage: 4 IU, QD, SUBCUTANEOUS
     Route: 058
     Dates: start: 20060301
  2. AVANDIA [Concomitant]
  3. ALTACE [Concomitant]

REACTIONS (3)
  - APPETITE DISORDER [None]
  - WEIGHT DECREASED [None]
  - WEIGHT INCREASED [None]
